FAERS Safety Report 4955414-8 (Version None)
Quarter: 2006Q1

REPORT INFORMATION
  Report Type: 
  Country: None (occurrence: None)
  Receive Date: 20060322
  Receipt Date: 20060309
  Transmission Date: 20060701
  Serious: Yes (Other)
  Sender: FDA-Public Use
  Company Number: 2006023779

PATIENT
  Age: 71 Year
  Sex: Male

DRUGS (6)
  1. VIAGRA [Suspect]
     Indication: ILL-DEFINED DISORDER
     Dosage: 100 MG (100 MG, 1 IN 1 D), ORAL
     Route: 048
  2. VITAMIN B COMPLEX CAP [Concomitant]
  3. ANTIHYPERTENSIVES [Concomitant]
  4. LAXATIVES [Concomitant]
  5. STOOL SOFTENER (DOCUSATE SODIUM) [Concomitant]
  6. ANTI-DIABETICS [Concomitant]

REACTIONS (5)
  - BLINDNESS UNILATERAL [None]
  - CATARACT [None]
  - OPTIC ISCHAEMIC NEUROPATHY [None]
  - PARKINSON'S DISEASE [None]
  - SCOTOMA [None]
